FAERS Safety Report 9497605 (Version 1)
Quarter: 2013Q3

REPORT INFORMATION
  Report Type: Spontaneous
  Country: DE (occurrence: None)
  Receive Date: 20130830
  Receipt Date: 20130830
  Transmission Date: 20140515
  Serious: Yes (Other)
  Sender: FDA-Public Use
  Company Number: NSR_01235_2013

PATIENT
  Sex: Female

DRUGS (12)
  1. ALLOPURINOL [Suspect]
     Indication: HAEMOLYTIC URAEMIC SYNDROME
  2. ALPHA-METHLYDOPA [Concomitant]
  3. METOPROLOL [Concomitant]
  4. MOXONIDINE [Concomitant]
  5. FUROSEMIDE [Concomitant]
  6. CLONIDINE [Concomitant]
  7. DARBEPOETIN ALFA [Concomitant]
  8. DANAPAROID [Concomitant]
  9. ENOXAPARIN [Concomitant]
  10. CORTICOSTEROIDS [Concomitant]
  11. COLECALCIFEROL [Concomitant]
  12. ALFACALCITDOL [Concomitant]

REACTIONS (2)
  - HELLP syndrome [None]
  - Maternal exposure during pregnancy [None]
